FAERS Safety Report 19847672 (Version 1)
Quarter: 2021Q3

REPORT INFORMATION
  Report Type: Spontaneous
  Country: CN (occurrence: CN)
  Receive Date: 20210917
  Receipt Date: 20210917
  Transmission Date: 20211014
  Serious: Yes (Hospitalization)
  Sender: FDA-Public Use
  Company Number: CN-ASTRAZENECA-2021A727134

PATIENT
  Age: 14937 Day
  Sex: Male
  Weight: 63 kg

DRUGS (4)
  1. PEMETREXED DISODIUM [Suspect]
     Active Substance: PEMETREXED DISODIUM
     Indication: CHEMOTHERAPY
     Route: 042
     Dates: start: 20210610, end: 20210610
  2. OSIMERTINIB. [Suspect]
     Active Substance: OSIMERTINIB
     Indication: IMMUNE SYSTEM DISORDER
     Route: 048
     Dates: start: 20210622, end: 20210731
  3. KEYTRUDA [Suspect]
     Active Substance: PEMBROLIZUMAB
     Indication: IMMUNE SYSTEM DISORDER
     Route: 042
     Dates: start: 20210610, end: 20210610
  4. CARBOPLATIN. [Suspect]
     Active Substance: CARBOPLATIN
     Indication: CHEMOTHERAPY
     Route: 042
     Dates: start: 20210610, end: 20210610

REACTIONS (1)
  - Autoimmune hepatitis [Recovering/Resolving]

NARRATIVE: CASE EVENT DATE: 20210729
